FAERS Safety Report 22125898 (Version 1)
Quarter: 2023Q1

REPORT INFORMATION
  Report Type: Spontaneous
  Country: US (occurrence: None)
  Receive Date: 20230321
  Receipt Date: 20230321
  Transmission Date: 20230417
  Serious: No
  Sender: FDA-Public Use
  Company Number: None

PATIENT

DRUGS (2)
  1. SULFACETAMIDE SODIUM\SULFUR [Suspect]
     Active Substance: SULFACETAMIDE SODIUM\SULFUR
     Route: 061
  2. SULFACETAMIDE SODIUM, SULFUR [Suspect]
     Active Substance: SULFACETAMIDE SODIUM\SULFUR

REACTIONS (3)
  - Product dispensing error [None]
  - Incorrect product dosage form administered [None]
  - Transcription medication error [None]
